FAERS Safety Report 9392800 (Version 3)
Quarter: 2014Q1

REPORT INFORMATION
  Report Type: Spontaneous
  Country: US (occurrence: US)
  Receive Date: 20130710
  Receipt Date: 20140128
  Transmission Date: 20141002
  Serious: Yes (Death, Hospitalization)
  Sender: FDA-Public Use
  Company Number: US-ASTELLAS-2013US007167

PATIENT
  Age: 52 Year
  Sex: Male
  Weight: 152 kg

DRUGS (1)
  1. XTANDI [Suspect]
     Indication: PROSTATE CANCER
     Dosage: 160 MG, UID/QD
     Route: 048
     Dates: start: 20130509, end: 2013

REACTIONS (4)
  - Malignant neoplasm progression [Fatal]
  - Decreased appetite [Unknown]
  - Asthenia [Unknown]
  - Myalgia [Unknown]
